FAERS Safety Report 26148753 (Version 1)
Quarter: 2025Q4

REPORT INFORMATION
  Report Type: Spontaneous
  Country: CN (occurrence: CN)
  Receive Date: 20251212
  Receipt Date: 20251212
  Transmission Date: 20260119
  Serious: Yes (Hospitalization)
  Sender: GE HEALTHCARE
  Company Number: None

PATIENT
  Age: 79 Year
  Sex: Female
  Weight: 62 kg

DRUGS (2)
  1. VISIPAQUE [Suspect]
     Active Substance: IODIXANOL
     Indication: Angiocardiogram
     Dosage: 1 DF, TOTAL
     Route: 013
     Dates: start: 20251121, end: 20251121
  2. VISIPAQUE [Suspect]
     Active Substance: IODIXANOL
     Indication: Interventional procedure

REACTIONS (5)
  - Ecchymosis [Recovered/Resolved]
  - Skin oedema [Recovered/Resolved]
  - Rash [Recovered/Resolved]
  - Erythema [Recovered/Resolved]
  - Pruritus [Recovered/Resolved]

NARRATIVE: CASE EVENT DATE: 20251125
